FAERS Safety Report 8069630-2 (Version None)
Quarter: 2012Q1

REPORT INFORMATION
  Report Type: 
  Country: None (occurrence: None)
  Receive Date: 20120125
  Receipt Date: 20120110
  Transmission Date: 20120608
  Serious: Yes (Hospitalization)
  Sender: FDA-Public Use
  Company Number: CA-JNJFOC-20120110066

PATIENT
  Sex: Female
  Weight: 47.3 kg

DRUGS (4)
  1. REMICADE [Suspect]
     Indication: RHEUMATOID ARTHRITIS
     Route: 042
  2. FOLIC ACID [Concomitant]
  3. REMICADE [Suspect]
     Dosage: 32ND INFUSION
     Route: 042
     Dates: start: 20111117
  4. METHOTREXATE [Concomitant]
     Route: 048

REACTIONS (1)
  - VOMITING [None]
